FAERS Safety Report 13128847 (Version 6)
Quarter: 2018Q4

REPORT INFORMATION
  Report Type: Report from Study
  Country: US (occurrence: US)
  Receive Date: 20170119
  Receipt Date: 20181218
  Transmission Date: 20190204
  Serious: Yes (Hospitalization)
  Sender: FDA-Public Use
  Company Number: US-CELGENEUS-USA-2017013234

PATIENT
  Age: 84 Year
  Sex: Male
  Weight: 75.36 kg

DRUGS (5)
  1. POMALYST [Suspect]
     Active Substance: POMALIDOMIDE
     Indication: PLASMA CELL MYELOMA
     Dosage: 4 MILLIGRAM
     Route: 048
     Dates: start: 20150415, end: 20161201
  2. POMALYST [Suspect]
     Active Substance: POMALIDOMIDE
     Dosage: 4 MILLIGRAM
     Route: 048
     Dates: start: 20170725, end: 20170901
  3. DEXAMETHASONE ORAL [Suspect]
     Active Substance: DEXAMETHASONE
     Dosage: 8 MILLIGRAM
     Route: 048
     Dates: start: 20161012, end: 201702
  4. POMALYST [Suspect]
     Active Substance: POMALIDOMIDE
     Dosage: 4 MILLIGRAM
     Route: 048
     Dates: end: 20170201
  5. DEXAMETHASONE ORAL [Suspect]
     Active Substance: DEXAMETHASONE
     Indication: PLASMA CELL MYELOMA
     Route: 048
     Dates: start: 20160415, end: 20161012

REACTIONS (2)
  - Pneumonia [Recovered/Resolved]
  - Diverticulitis [Recovered/Resolved]

NARRATIVE: CASE EVENT DATE: 20161030
